FAERS Safety Report 5914554-7 (Version None)
Quarter: 2008Q4

REPORT INFORMATION
  Report Type: 
  Country: None (occurrence: None)
  Receive Date: 20081008
  Receipt Date: 20081001
  Transmission Date: 20090506
  Serious: Yes (Death, Hospitalization)
  Sender: FDA-Public Use
  Company Number: SP02063

PATIENT
  Age: 81 Year
  Sex: Female
  Weight: 50.3493 kg

DRUGS (8)
  1. OSMOPREP [Suspect]
     Indication: COLONOSCOPY
     Dosage: ORAL
     Route: 048
     Dates: start: 20080821, end: 20080821
  2. OSMOPREP [Suspect]
     Indication: PREOPERATIVE CARE
     Dosage: ORAL
     Route: 048
     Dates: start: 20080821, end: 20080821
  3. HYDROCHLOROTHIAZIDE [Concomitant]
  4. DIGOXIN [Concomitant]
  5. DIOVAN [Concomitant]
  6. AMLODIPINE [Concomitant]
  7. FOSAMAX [Concomitant]
  8. CENTRUM VITAMINS [Concomitant]

REACTIONS (9)
  - CARDIAC DISORDER [None]
  - COLITIS [None]
  - DEHYDRATION [None]
  - NAUSEA [None]
  - RENAL FAILURE [None]
  - THERAPEUTIC AGENT TOXICITY [None]
  - TREATMENT NONCOMPLIANCE [None]
  - TROPONIN I INCREASED [None]
  - VOMITING [None]
